FAERS Safety Report 23303845 (Version 1)
Quarter: 2023Q4

REPORT INFORMATION
  Report Type: Spontaneous
  Country: DE (occurrence: DE)
  Receive Date: 20231215
  Receipt Date: 20231215
  Transmission Date: 20240110
  Serious: Yes (Hospitalization, Other)
  Sender: FDA-Public Use
  Company Number: DE-AMK-270435

PATIENT
  Age: 72 Year
  Sex: Female
  Weight: 98 kg

DRUGS (10)
  1. FRAGMIN [Suspect]
     Active Substance: DALTEPARIN SODIUM
     Dosage: 2500 IU/ML, 1X/DAY
     Route: 058
     Dates: start: 20231018, end: 20231024
  2. PANTOPRAZOLE [Concomitant]
     Active Substance: PANTOPRAZOLE
     Dosage: 40 MG, PERMANENT MEDICATION
  3. EFEROX [Concomitant]
     Active Substance: LEVOTHYROXINE SODIUM
     Dosage: PERMANENT MEDICATION
  4. ACETAMINOPHEN [Concomitant]
     Active Substance: ACETAMINOPHEN
     Dates: start: 20231019
  5. ATORVASTATIN [Concomitant]
     Active Substance: ATORVASTATIN
     Dosage: PERMANENT MEDICATION
  6. POLYETHYLENE GLYCOLS [Concomitant]
     Active Substance: POLYETHYLENE GLYCOLS
     Dates: start: 20231019
  7. NALOXONE HYDROCHLORIDE\OXYCODONE HYDROCHLORIDE [Concomitant]
     Active Substance: NALOXONE HYDROCHLORIDE\OXYCODONE HYDROCHLORIDE
     Dates: start: 20231019
  8. INDAPAMIDE [Concomitant]
     Active Substance: INDAPAMIDE
     Dosage: PERMANENT MEDICATION
  9. DICLOFENAC [Concomitant]
     Active Substance: DICLOFENAC
     Dates: start: 20231019
  10. RAMIPRIL [Concomitant]
     Active Substance: RAMIPRIL
     Dosage: PERMANENT MEDICATION

REACTIONS (1)
  - Pulmonary embolism [Not Recovered/Not Resolved]

NARRATIVE: CASE EVENT DATE: 20231024
